FAERS Safety Report 11226289 (Version 4)
Quarter: 2015Q3

REPORT INFORMATION
  Report Type: Spontaneous
  Country: FR (occurrence: FR)
  Receive Date: 20150629
  Receipt Date: 20150821
  Transmission Date: 20151125
  Serious: Yes (Other)
  Sender: FDA-Public Use
  Company Number: FR-BAXALTA-2015BLT000005

PATIENT
  Age: 60 Year
  Sex: Male

DRUGS (16)
  1. KIOVIG [Suspect]
     Active Substance: HUMAN IMMUNOGLOBULIN G
     Dosage: UNK
     Route: 065
     Dates: start: 20111206, end: 20111209
  2. OCTAGAM IMMUNE GLOBULIN (HUMAN) [Suspect]
     Active Substance: HUMAN IMMUNOGLOBULIN G
     Dosage: 2 UNITS THE FIRST 3 DAYS, THEN 1 UNIT ON 13APR
     Route: 042
     Dates: start: 20120410, end: 20120413
  3. OCTAGAM IMMUNE GLOBULIN (HUMAN) [Suspect]
     Active Substance: HUMAN IMMUNOGLOBULIN G
     Dosage: 2 IU, 1X A DAY
     Route: 042
     Dates: start: 20120521, end: 20120521
  4. OCTAGAM IMMUNE GLOBULIN (HUMAN) [Suspect]
     Active Substance: HUMAN IMMUNOGLOBULIN G
     Dosage: 1 IU, 1X A DAY
     Route: 042
     Dates: start: 20120522, end: 20120525
  5. OCTAGAM IMMUNE GLOBULIN (HUMAN) [Suspect]
     Active Substance: HUMAN IMMUNOGLOBULIN G
     Dosage: UNK UNK, 3X A DAY
     Route: 042
     Dates: start: 20120118, end: 20120120
  6. KETOPROFENE ACTAVIS [Concomitant]
     Indication: PRODUCT USED FOR UNKNOWN INDICATION
     Dosage: UNK UNK, AS NEEDED
     Route: 065
  7. OCTAGAM IMMUNE GLOBULIN (HUMAN) [Suspect]
     Active Substance: HUMAN IMMUNOGLOBULIN G
     Indication: MULTIFOCAL MOTOR NEUROPATHY
     Dosage: 400 MG, 4 UNITS ON 16JAN AND 3 UNITS ON 17JAN
     Route: 042
     Dates: start: 20120116, end: 20120117
  8. TEGELINE [Concomitant]
     Active Substance: HUMAN IMMUNOGLOBULIN G
     Indication: PRODUCT USED FOR UNKNOWN INDICATION
     Dosage: UNK
     Route: 065
     Dates: start: 20120702, end: 20120706
  9. KIOVIG [Suspect]
     Active Substance: HUMAN IMMUNOGLOBULIN G
     Dosage: 400 MG,1 X A DAY, OVER 5 DAYS
     Route: 042
     Dates: start: 20111206, end: 20111206
  10. OCTAGAM IMMUNE GLOBULIN (HUMAN) [Suspect]
     Active Substance: HUMAN IMMUNOGLOBULIN G
     Dosage: 1 IU, 1X A DAY
     Route: 042
     Dates: start: 20120522, end: 20120525
  11. KIOVIG [Suspect]
     Active Substance: HUMAN IMMUNOGLOBULIN G
     Indication: MULTIFOCAL MOTOR NEUROPATHY
     Dosage: 400 MG, 1 X A DAY, OVER 5 DAYS
     Route: 042
     Dates: start: 20111205, end: 20111205
  12. KIOVIG [Suspect]
     Active Substance: HUMAN IMMUNOGLOBULIN G
     Indication: MULTIFOCAL MOTOR NEUROPATHY
     Dosage: UNK
     Route: 065
     Dates: start: 20111205, end: 20111205
  13. TRAMADOL. [Concomitant]
     Active Substance: TRAMADOL
     Indication: PRODUCT USED FOR UNKNOWN INDICATION
     Dosage: 200 MG, 1X A DAY IN THE EVENING
     Route: 065
  14. OCTAGAM IMMUNE GLOBULIN (HUMAN) [Suspect]
     Active Substance: HUMAN IMMUNOGLOBULIN G
     Dosage: 1 UNIT ON 27FEB THEN 2 UNITS 28-29FEB-01MAR, THEN 1 UNIT ON 02MAR
     Route: 042
     Dates: start: 20120227, end: 20120302
  15. OCTAGAM IMMUNE GLOBULIN (HUMAN) [Suspect]
     Active Substance: HUMAN IMMUNOGLOBULIN G
     Dosage: UNK UNK, 1X A DAY
     Route: 042
     Dates: start: 20120413, end: 20120413
  16. TRAMADOL. [Concomitant]
     Active Substance: TRAMADOL
     Dosage: 50 MG, 1X A DAY AT NOON
     Route: 065

REACTIONS (2)
  - Dermatitis bullous [Recovered/Resolved]
  - Rash [Recovered/Resolved]

NARRATIVE: CASE EVENT DATE: 20111209
